FAERS Safety Report 4395962-5 (Version None)
Quarter: 2004Q3

REPORT INFORMATION
  Report Type: 
  Country: None (occurrence: None)
  Receive Date: 20040707
  Receipt Date: 20030109
  Transmission Date: 20050211
  Serious: Yes (Death, Hospitalization)
  Sender: FDA-Public Use
  Company Number: 2003IM000037

PATIENT
  Age: 61 Year
  Sex: Male
  Weight: 76 kg

DRUGS (3)
  1. INTERFERON GAMMA-1B (INTERFERON GAMMA-1B) [Suspect]
     Indication: INTERSTITIAL LUNG DISEASE
     Dosage: TIW, SUBCUTANEOUS
     Route: 058
     Dates: start: 20021206, end: 20021223
  2. OXYGEN [Concomitant]
  3. HYTRIN [Concomitant]

REACTIONS (8)
  - CARDIAC ARREST [None]
  - COUGH [None]
  - DIZZINESS [None]
  - LOSS OF CONSCIOUSNESS [None]
  - LOWER RESPIRATORY TRACT INFECTION [None]
  - OEDEMA PERIPHERAL [None]
  - RESPIRATORY DISTRESS [None]
  - SYNCOPE [None]
